FAERS Safety Report 5410521-0 (Version None)
Quarter: 2007Q3

REPORT INFORMATION
  Report Type: 
  Country: None (occurrence: None)
  Receive Date: 20070810
  Receipt Date: 20070212
  Transmission Date: 20080115
  Serious: No
  Sender: FDA-Public Use
  Company Number: A0639199A

PATIENT
  Age: 37 Year
  Sex: Male

DRUGS (4)
  1. PAXIL [Suspect]
     Indication: DEPRESSION
     Dosage: 20MG PER DAY
     Route: 048
     Dates: start: 20061101
  2. PROTONIX [Concomitant]
  3. LORAZEPAM [Concomitant]
  4. ATENOLOL [Concomitant]

REACTIONS (2)
  - DRUG INEFFECTIVE [None]
  - EXPIRED DRUG ADMINISTERED [None]
